FAERS Safety Report 6074254-2 (Version None)
Quarter: 2009Q1

REPORT INFORMATION
  Report Type: 
  Country: None (occurrence: None)
  Receive Date: 20090211
  Receipt Date: 20090204
  Transmission Date: 20090719
  Serious: Yes (Other)
  Sender: FDA-Public Use
  Company Number: PHHY2008FR31696

PATIENT
  Sex: Female
  Weight: 79 kg

DRUGS (5)
  1. EXELON [Suspect]
     Indication: DEMENTIA ALZHEIMER'S TYPE
     Dosage: 4.6 MG, QD
     Route: 062
     Dates: start: 20081024, end: 20081105
  2. TANAKAN [Concomitant]
     Dosage: 3 DF DAILY
  3. IRBESARTAN [Concomitant]
     Dosage: 300 MG DAILY
  4. AMLODIPINE [Concomitant]
     Dosage: 100 MG DAILY
  5. TOCO [Concomitant]
     Dosage: 1 DF, QD

REACTIONS (5)
  - ABNORMAL BEHAVIOUR [None]
  - AGGRESSION [None]
  - AGITATION [None]
  - ANXIETY [None]
  - HALLUCINATION [None]
